FAERS Safety Report 11228685 (Version 1)
Quarter: 2015Q2

REPORT INFORMATION
  Report Type: Spontaneous
  Country: US (occurrence: US)
  Receive Date: 20150630
  Receipt Date: 20150630
  Transmission Date: 20150821
  Serious: No
  Sender: FDA-Public Use
  Company Number: US-MEDA-2015030086

PATIENT
  Sex: Female

DRUGS (4)
  1. GABAPENTIN. [Suspect]
     Active Substance: GABAPENTIN
  2. MORPHINE [Suspect]
     Active Substance: MORPHINE
  3. XANAX [Suspect]
     Active Substance: ALPRAZOLAM
  4. SOMA [Suspect]
     Active Substance: CARISOPRODOL

REACTIONS (4)
  - Diabetes mellitus [Unknown]
  - Panic attack [Unknown]
  - Nervousness [Unknown]
  - Anxiety [Unknown]
